FAERS Safety Report 24711902 (Version 1)
Quarter: 2024Q4

REPORT INFORMATION
  Report Type: Spontaneous
  Country: CN (occurrence: CN)
  Receive Date: 20241209
  Receipt Date: 20241209
  Transmission Date: 20250114
  Serious: Yes (Death, Other)
  Sender: NOVARTIS
  Company Number: CN-002147023-NVSC2024CN233262

PATIENT
  Age: 56 Year
  Sex: Female

DRUGS (3)
  1. CERITINIB [Suspect]
     Active Substance: CERITINIB
     Indication: Lung adenocarcinoma stage IV
     Dosage: 450 MG, QD
     Route: 065
     Dates: start: 202311
  2. ALECTINIB [Suspect]
     Active Substance: ALECTINIB
     Indication: Lung adenocarcinoma stage IV
     Dosage: 600 MG
     Route: 065
     Dates: start: 202205
  3. ENSARTINIB [Suspect]
     Active Substance: ENSARTINIB
     Indication: Lung adenocarcinoma stage IV
     Route: 065
     Dates: start: 202308

REACTIONS (3)
  - Lung adenocarcinoma stage IV [Fatal]
  - Malignant neoplasm progression [Fatal]
  - Drug ineffective [Unknown]
